FAERS Safety Report 21663473 (Version 1)
Quarter: 2022Q4

REPORT INFORMATION
  Report Type: Spontaneous
  Country: US (occurrence: US)
  Receive Date: 20221130
  Receipt Date: 20221130
  Transmission Date: 20230113
  Serious: Yes (Hospitalization, Other)
  Sender: FDA-Public Use
  Company Number: US-JUBILANT CADISTA PHARMACEUTICALS-2022JUB00451

PATIENT
  Age: 46 Year
  Sex: Female

DRUGS (4)
  1. PREDNISONE [Suspect]
     Active Substance: PREDNISONE
     Indication: Uveitis
     Dosage: 60 MG, 1X/DAY
     Route: 048
     Dates: start: 2021, end: 2021
  2. PREDNISONE [Suspect]
     Active Substance: PREDNISONE
     Indication: Condition aggravated
  3. IBUPROFEN [Concomitant]
     Active Substance: IBUPROFEN
     Dosage: AS NECESSARY
  4. SULFAMETHOXAZOLE AND TRIMETHOPRIM [Concomitant]
     Active Substance: SULFAMETHOXAZOLE\TRIMETHOPRIM
     Indication: Urinary tract infection

REACTIONS (8)
  - Acute hepatic failure [Recovered/Resolved]
  - Herpes simplex encephalitis [Recovered/Resolved]
  - Viral myocarditis [Recovered/Resolved]
  - Hepatic necrosis [Recovered/Resolved]
  - Generalised tonic-clonic seizure [Recovered/Resolved]
  - Ventricular hypokinesia [Recovered/Resolved]
  - Cardiomyopathy [Recovered/Resolved]
  - Herpes simplex hepatitis [Recovered/Resolved]

NARRATIVE: CASE EVENT DATE: 20210101
